FAERS Safety Report 8847835 (Version 1)
Quarter: 2012Q4

REPORT INFORMATION
  Report Type: 
  Country: FR (occurrence: FR)
  Receive Date: 20121018
  Receipt Date: 20121018
  Transmission Date: 20130627
  Serious: Yes (Other)
  Sender: FDA-Public Use
  Company Number: FR-UCBSA-068805

PATIENT
  Age: 77 Year
  Sex: Female

DRUGS (1)
  1. KEPPRA [Suspect]
     Indication: CEREBRAL HAEMATOMA
     Route: 048
     Dates: start: 20120830, end: 20120905

REACTIONS (3)
  - Rash [Recovered/Resolved]
  - Perivascular dermatitis [Recovered/Resolved]
  - Toxic skin eruption [Recovered/Resolved]
